FAERS Safety Report 10302438 (Version 2)
Quarter: 2014Q3

REPORT INFORMATION
  Report Type: Spontaneous
  Country: US (occurrence: None)
  Receive Date: 20140709
  Receipt Date: 20140801
  Transmission Date: 20150326
  Serious: Yes (Death)
  Sender: FDA-Public Use
  Company Number: UNT-2014-003197

PATIENT
  Age: 57 Year
  Sex: Female
  Weight: 72.6 kg

DRUGS (8)
  1. ADCIRCA [Concomitant]
     Active Substance: TADALAFIL
  2. NEPHRO-VITE /01801401/(ASORBIC ACID, BIOTIN, CYANOCOBALAMIN, FOLIC ACID, NICOTINAMIDE, PANTOTHENIC ACID, PYRIDOXINE HYDROCHLORIDE, RIBOFLAVIN, THIAMINE HYDROCHLORIDE) [Concomitant]
  3. PRETANIX (INDAPAMIDE) [Concomitant]
  4. COUMADIN /00014802/ (WARFARIN SODIUM) [Concomitant]
  5. TYVASO [Suspect]
     Active Substance: TREPROSTINIL
     Indication: PULMONARY ARTERIAL HYPERTENSION
     Route: 055
     Dates: start: 20130326, end: 20140520
  6. WARFARIN (WARFARIN) [Concomitant]
     Active Substance: WARFARIN
  7. TRACLEER /01587701/ (BOSENTAN) [Concomitant]
  8. DIGOXIN. [Concomitant]
     Active Substance: DIGOXIN

REACTIONS (2)
  - Cardiac arrest [None]
  - Death [None]

NARRATIVE: CASE EVENT DATE: 20140520
